FAERS Safety Report 9876122 (Version 2)
Quarter: 2014Q1

REPORT INFORMATION
  Report Type: Spontaneous
  Country: IT (occurrence: None)
  Receive Date: 20140204
  Receipt Date: 20140328
  Transmission Date: 20141002
  Serious: Yes (Hospitalization)
  Sender: FDA-Public Use
  Company Number: SP07464

PATIENT
  Age: 37 Year
  Sex: Female

DRUGS (1)
  1. MOVIPREP [Suspect]
     Indication: BOWEL PREPARATION
     Route: 048
     Dates: start: 20140119, end: 20140119

REACTIONS (4)
  - Syncope [None]
  - Diarrhoea [None]
  - Contusion [None]
  - Blood pressure systolic decreased [None]
